FAERS Safety Report 9769171 (Version 4)
Quarter: 2014Q1

REPORT INFORMATION
  Report Type: Report from Study
  Country: CZ (occurrence: CZ)
  Receive Date: 20131218
  Receipt Date: 20140313
  Transmission Date: 20141002
  Serious: Yes (Death, Hospitalization)
  Sender: FDA-Public Use
  Company Number: CZ-ROCHE-1315829

PATIENT
  Age: 51 Year
  Sex: Male
  Weight: 70 kg

DRUGS (18)
  1. RITUXIMAB [Suspect]
     Indication: CHRONIC LYMPHOCYTIC LEUKAEMIA
     Dosage: OVER TWO DAYS
     Route: 042
     Dates: start: 20121106, end: 20121107
  2. RITUXIMAB [Suspect]
     Route: 042
     Dates: start: 20130115
  3. RITUXIMAB [Suspect]
     Route: 042
     Dates: start: 20130122
  4. RITUXIMAB [Suspect]
     Route: 042
     Dates: start: 20130129
  5. RITUXIMAB [Suspect]
     Route: 042
     Dates: start: 20130205
  6. RHUPH20/RITUXIMAB [Suspect]
     Indication: CHRONIC LYMPHOCYTIC LEUKAEMIA
     Dosage: DATE OF LAST DOSE PRIOR TO SAE 05/DEC/2012.
     Route: 058
     Dates: start: 20121106
  7. FLUDARABINE [Suspect]
     Indication: CHRONIC LYMPHOCYTIC LEUKAEMIA
     Dosage: OVER THREE DAYS
     Route: 048
     Dates: start: 20121107, end: 20121109
  8. FLUDARABINE [Suspect]
     Dosage: OVER THREE DAYS
     Route: 048
     Dates: start: 20121205, end: 20121207
  9. CYCLOPHOSPHAMIDE [Suspect]
     Indication: CHRONIC LYMPHOCYTIC LEUKAEMIA
     Dosage: OVER THREE DAYS; TOTAL 2 CYCLES
     Route: 048
     Dates: start: 20121107, end: 20121109
  10. CYCLOPHOSPHAMIDE [Suspect]
     Dosage: OVER THREE DAYS; TOTAL 2 CYCLES
     Route: 048
     Dates: start: 20121205, end: 20121207
  11. PARACETAMOL [Concomitant]
     Route: 065
     Dates: start: 20121105, end: 20121205
  12. BISULEPIN [Concomitant]
     Route: 065
     Dates: start: 20121106, end: 20121205
  13. HYDROCORTISONE [Concomitant]
     Route: 065
     Dates: start: 20121106, end: 20121205
  14. ALLOPURINOL [Concomitant]
     Route: 065
     Dates: start: 20121106, end: 20130219
  15. HERPESIN [Concomitant]
     Route: 065
     Dates: start: 20121106, end: 20130305
  16. SULFAMETHOXAZOLUM [Concomitant]
     Route: 065
     Dates: start: 20121106, end: 20130305
  17. CIPROFLOXACINUM [Concomitant]
     Route: 065
     Dates: start: 20121212, end: 20121216
  18. AMOXICILLINUM [Concomitant]
     Route: 065
     Dates: start: 20121212, end: 20121218

REACTIONS (1)
  - Progressive multifocal leukoencephalopathy [Fatal]
